FAERS Safety Report 23534024 (Version 1)
Quarter: 2024Q1

REPORT INFORMATION
  Report Type: Spontaneous
  Country: US (occurrence: US)
  Receive Date: 20240216
  Receipt Date: 20240216
  Transmission Date: 20240410
  Serious: Yes (Hospitalization, Other)
  Sender: FDA-Public Use
  Company Number: US-VERTEX PHARMACEUTICALS-2024-002472

PATIENT

DRUGS (1)
  1. TRIKAFTA [Suspect]
     Active Substance: ELEXACAFTOR\IVACAFTOR\TEZACAFTOR
     Indication: Cystic fibrosis
     Dosage: UNK
     Route: 048

REACTIONS (6)
  - Respiratory syncytial virus infection [Unknown]
  - Lung transplant [Recovered/Resolved]
  - Suicidal ideation [Not Recovered/Not Resolved]
  - Illness [Unknown]
  - Asthenia [Not Recovered/Not Resolved]
  - Lung transplant rejection [Unknown]

NARRATIVE: CASE EVENT DATE: 20200101
